FAERS Safety Report 23310547 (Version 3)
Quarter: 2023Q4

REPORT INFORMATION
  Report Type: Spontaneous
  Country: US (occurrence: US)
  Receive Date: 20231218
  Receipt Date: 20231221
  Transmission Date: 20240110
  Serious: No
  Sender: FDA-Public Use
  Company Number: US-002147023-NVSC2023US261548

PATIENT
  Sex: Female

DRUGS (3)
  1. LEQVIO [Suspect]
     Active Substance: INCLISIRAN SODIUM
     Indication: Hyperlipidaemia
     Dosage: UNK, OTHER (INITIAL INJECTION, NEXT INJECTION 3 MONTHS LATER, FOLLOWED BY INJECTION EVERY 6 MONTHS A
     Route: 058
     Dates: start: 20230907, end: 20231207
  2. LEQVIO [Suspect]
     Active Substance: INCLISIRAN SODIUM
     Indication: Type IIa hyperlipidaemia
  3. LEQVIO [Suspect]
     Active Substance: INCLISIRAN SODIUM
     Indication: Low density lipoprotein increased

REACTIONS (4)
  - Blood cholesterol increased [Not Recovered/Not Resolved]
  - Blood triglycerides [Not Recovered/Not Resolved]
  - Very low density lipoprotein increased [Not Recovered/Not Resolved]
  - Low density lipoprotein [Not Recovered/Not Resolved]

NARRATIVE: CASE EVENT DATE: 20231127
